FAERS Safety Report 6159268-6 (Version None)
Quarter: 2009Q2

REPORT INFORMATION
  Report Type: 
  Country: None (occurrence: None)
  Receive Date: 20090414
  Receipt Date: 20090330
  Transmission Date: 20091009
  Serious: Yes (Other)
  Sender: FDA-Public Use
  Company Number: 2008-1255

PATIENT
  Age: 51 Year
  Sex: Female

DRUGS (3)
  1. SOMATULINE L.P. 90MG (LANREOTIDE ACETATE) (LANREOTIDE ACETATE) [Suspect]
     Indication: SECRETORY ADENOMA OF PITUITARY
     Dosage: (90 MG) SUBCUTANEOUS
     Route: 058
  2. OCTREOTIDE ACETATE [Suspect]
     Indication: SECRETORY ADENOMA OF PITUITARY
     Dosage: (10 G)
     Dates: start: 20010601
  3. LIPANTHYL [Concomitant]

REACTIONS (8)
  - ASTHENIA [None]
  - BILIARY DILATATION [None]
  - CHOLELITHIASIS [None]
  - COLITIS ISCHAEMIC [None]
  - HYPERHIDROSIS [None]
  - LOSS OF CONSCIOUSNESS [None]
  - STEATORRHOEA [None]
  - SYNCOPE [None]
